FAERS Safety Report 5951525-9 (Version None)
Quarter: 2008Q4

REPORT INFORMATION
  Report Type: 
  Country: None (occurrence: None)
  Receive Date: 20081113
  Receipt Date: 20081031
  Transmission Date: 20090506
  Serious: Yes (Hospitalization, Other)
  Sender: FDA-Public Use
  Company Number: US-BAYER-200813264BCC

PATIENT
  Age: 78 Year
  Sex: Female
  Weight: 52 kg

DRUGS (9)
  1. ASPIRIN [Suspect]
     Indication: ISCHAEMIC HEART DISEASE PROPHYLAXIS
     Dosage: TOTAL DAILY DOSE: 325 MG  UNIT DOSE: 325 MG
     Route: 048
     Dates: start: 20050101, end: 20080731
  2. ASPIRIN [Suspect]
     Indication: ISCHAEMIC HEART DISEASE PROPHYLAXIS
     Dosage: TOTAL DAILY DOSE: 81 MG  UNIT DOSE: 81 MG
     Route: 048
     Dates: start: 20080701
  3. PHILLIPS LAXATIVE DIETARY SUPPLEMENT [Suspect]
     Indication: CONSTIPATION
     Dosage: TOTAL DAILY DOSE: 2 DF  UNIT DOSE: 1 DF
     Route: 048
     Dates: start: 20080701
  4. ZOCOR [Concomitant]
  5. DETROL [Concomitant]
  6. MARC'S VITAMIN C [Concomitant]
  7. PAXIL [Concomitant]
  8. DILANTIN [Concomitant]
  9. DILANTIN [Concomitant]

REACTIONS (6)
  - ANOREXIA [None]
  - CONTUSION [None]
  - DEHYDRATION [None]
  - FALL [None]
  - RIB FRACTURE [None]
  - WEIGHT DECREASED [None]
